FAERS Safety Report 24078913 (Version 4)
Quarter: 2025Q2

REPORT INFORMATION
  Report Type: Report from Study
  Country: CA (occurrence: CA)
  Receive Date: 20240711
  Receipt Date: 20250616
  Transmission Date: 20250717
  Serious: Yes (Other)
  Sender: TAKEDA
  Company Number: CA-TAKEDA-2020TUS042705

PATIENT
  Sex: Male

DRUGS (19)
  1. VEDOLIZUMAB [Suspect]
     Active Substance: VEDOLIZUMAB
     Indication: Colitis ulcerative
  2. VEDOLIZUMAB [Suspect]
     Active Substance: VEDOLIZUMAB
     Dosage: 300 MILLIGRAM, Q4WEEKS
     Dates: start: 20201030
  3. VEDOLIZUMAB [Suspect]
     Active Substance: VEDOLIZUMAB
     Dosage: 300 MILLIGRAM, Q4WEEKS
  4. VEDOLIZUMAB [Suspect]
     Active Substance: VEDOLIZUMAB
  5. VEDOLIZUMAB [Suspect]
     Active Substance: VEDOLIZUMAB
     Dosage: 300 MILLIGRAM, Q4WEEKS
  6. VEDOLIZUMAB [Suspect]
     Active Substance: VEDOLIZUMAB
     Dosage: 300 MILLIGRAM, Q4WEEKS
  7. VEDOLIZUMAB [Suspect]
     Active Substance: VEDOLIZUMAB
     Dosage: 300 MILLIGRAM, Q4WEEKS
  8. VEDOLIZUMAB [Suspect]
     Active Substance: VEDOLIZUMAB
     Dosage: 300 MILLIGRAM, Q4WEEKS
  9. METFORMIN [Concomitant]
     Active Substance: METFORMIN HYDROCHLORIDE
     Indication: Pouchitis
  10. RIFAXIMIN [Concomitant]
     Active Substance: RIFAXIMIN
  11. CIPRO [Concomitant]
     Active Substance: CIPROFLOXACIN HYDROCHLORIDE
  12. ESOMEPRAZOLE [Concomitant]
     Active Substance: ESOMEPRAZOLE
  13. CHOLESTYRAMINE [Concomitant]
     Active Substance: CHOLESTYRAMINE
  14. CELECOXIB [Concomitant]
     Active Substance: CELECOXIB
  15. RAMIPRIL [Concomitant]
     Active Substance: RAMIPRIL
  16. ROSUVASTATIN [Concomitant]
     Active Substance: ROSUVASTATIN
  17. JARDIANCE [Concomitant]
     Active Substance: EMPAGLIFLOZIN
  18. SYNTHROID [Concomitant]
     Active Substance: LEVOTHYROXINE SODIUM
  19. GLICLAZIDE [Concomitant]
     Active Substance: GLICLAZIDE

REACTIONS (10)
  - Colitis ulcerative [Unknown]
  - Drug ineffective [Not Recovered/Not Resolved]
  - Pouchitis [Unknown]
  - Frequent bowel movements [Unknown]
  - Influenza like illness [Unknown]
  - Malaise [Unknown]
  - Flatulence [Unknown]
  - Abdominal distension [Unknown]
  - Nausea [Unknown]
  - Fatigue [Unknown]
